FAERS Safety Report 4633984-7 (Version None)
Quarter: 2005Q2

REPORT INFORMATION
  Report Type: 
  Country: None (occurrence: None)
  Receive Date: 20050412
  Receipt Date: 20050412
  Transmission Date: 20051028
  Serious: Yes (Hospitalization)
  Sender: FDA-Public Use
  Company Number: None

PATIENT
  Age: 72 Year
  Sex: Male
  Weight: 72.5755 kg

DRUGS (11)
  1. AMIODARONE 200 MG [Suspect]
     Indication: ATRIAL FIBRILLATION
     Dosage: 200 MG TWICE DAILY ORAL
     Route: 048
     Dates: start: 20000901, end: 20040213
  2. ATORVASTATIN CALCIUM [Concomitant]
  3. PANTOPRAZOLE SODIUM [Concomitant]
  4. FUROSEMIDE [Concomitant]
  5. MEXILETENE [Concomitant]
  6. DIGOXIN [Concomitant]
  7. POTASSIUM CHLORIDE [Concomitant]
  8. ENALAPRIL [Concomitant]
  9. PREDNISONE [Concomitant]
  10. CARVEDILOL [Concomitant]
  11. WARFARIN SODIUM [Concomitant]

REACTIONS (4)
  - DISEASE RECURRENCE [None]
  - PULMONARY ALVEOLAR HAEMORRHAGE [None]
  - PULMONARY HAEMORRHAGE [None]
  - VENTRICULAR TACHYCARDIA [None]
